FAERS Safety Report 4354373-9 (Version None)
Quarter: 2004Q2

REPORT INFORMATION
  Report Type: 
  Country: None (occurrence: None)
  Receive Date: 20040506
  Receipt Date: 20040220
  Transmission Date: 20050107
  Serious: Yes (Hospitalization)
  Sender: FDA-Public Use
  Company Number: US-MERCK-0402USA01629

PATIENT
  Age: 49 Year
  Sex: Male

DRUGS (4)
  1. [THERAPY UNSPECIFIED] [Concomitant]
     Indication: HYPERTENSION
     Route: 065
  2. METHADONE HYDROCHLORIDE [Concomitant]
     Indication: PAIN
     Route: 065
  3. VIOXX [Suspect]
     Indication: BACK PAIN
     Route: 048
  4. VIOXX [Suspect]
     Route: 048

REACTIONS (4)
  - BLOOD PRESSURE INCREASED [None]
  - HEART RATE INCREASED [None]
  - HYPERTENSION [None]
  - MYOCARDIAL INFARCTION [None]
